FAERS Safety Report 9061358 (Version 1)
Quarter: 2013Q1

REPORT INFORMATION
  Report Type: Spontaneous
  Country: US (occurrence: None)
  Receive Date: 20130208
  Receipt Date: 20130208
  Transmission Date: 20140127
  Serious: Yes (Disabling)
  Sender: FDA-Public Use
  Company Number: None

PATIENT
  Age: 85 Year
  Sex: Female
  Weight: 45.36 kg

DRUGS (1)
  1. PROLIA [Suspect]
     Indication: OSTEOPOROSIS
     Dosage: 1 SHOT
     Dates: start: 20120717, end: 20120717

REACTIONS (6)
  - Gait disturbance [None]
  - Walking aid user [None]
  - Sensory loss [None]
  - Activities of daily living impaired [None]
  - Impaired driving ability [None]
  - Abasia [None]
